FAERS Safety Report 12049093 (Version 1)
Quarter: 2016Q1

REPORT INFORMATION
  Report Type: Spontaneous
  Country: US (occurrence: None)
  Receive Date: 20160208
  Receipt Date: 20160208
  Transmission Date: 20160526
  Serious: Yes (Disabling)
  Sender: FDA-Public Use
  Company Number: None

PATIENT
  Age: 49 Year
  Sex: Male
  Weight: 99.34 kg

DRUGS (14)
  1. PANTOPRAZOLE [Concomitant]
     Active Substance: PANTOPRAZOLE SODIUM
  2. VITAMIN B12 [Concomitant]
     Active Substance: CYANOCOBALAMIN
  3. METFORMIN [Suspect]
     Active Substance: METFORMIN HYDROCHLORIDE
     Indication: TYPE 2 DIABETES MELLITUS
     Dosage: 1000 MG, TWICE DAILY, TAKEN BY MOUTH
     Route: 048
     Dates: start: 2014
  4. NAPROXIN [Concomitant]
     Active Substance: NAPROXEN
  5. C [Concomitant]
  6. PRAVISTATIN [Concomitant]
  7. BIOTIN [Concomitant]
     Active Substance: BIOTIN
  8. TESTOSTERONE. [Concomitant]
     Active Substance: TESTOSTERONE
  9. FENEFIBRATE [Concomitant]
  10. FLAGYL [Concomitant]
     Active Substance: METRONIDAZOLE\METRONIDAZOLE HYDROCHLORIDE
  11. COCONUT OIL [Concomitant]
     Active Substance: COCONUT OIL
  12. DULOXETINE. [Concomitant]
     Active Substance: DULOXETINE
  13. ACETAZOLAMIDE. [Concomitant]
     Active Substance: ACETAZOLAMIDE
  14. CINNAMON. [Concomitant]
     Active Substance: CINNAMON

REACTIONS (5)
  - Dyspnoea [None]
  - Abdominal pain upper [None]
  - Arthralgia [None]
  - Back pain [None]
  - Chest pain [None]

NARRATIVE: CASE EVENT DATE: 20150912
